FAERS Safety Report 4280525-2 (Version None)
Quarter: 2004Q1

REPORT INFORMATION
  Report Type: 
  Country: None (occurrence: None)
  Receive Date: 20040127
  Receipt Date: 20040114
  Transmission Date: 20041129
  Serious: Yes (Hospitalization)
  Sender: FDA-Public Use
  Company Number: 2002AP03309

PATIENT
  Age: 62 Year
  Sex: Female

DRUGS (4)
  1. ZD1839 [Suspect]
     Indication: OESOPHAGEAL CARCINOMA
     Dosage: 500 MG DAILY PO
     Route: 048
     Dates: start: 20021002
  2. TEMESTA [Concomitant]
  3. PREPULSID [Concomitant]
  4. TEMAZEPAM [Concomitant]

REACTIONS (5)
  - ASPARTATE AMINOTRANSFERASE INCREASED [None]
  - BLOOD ALKALINE PHOSPHATASE INCREASED [None]
  - HYPONATRAEMIA [None]
  - LOBAR PNEUMONIA [None]
  - PYREXIA [None]
